FAERS Safety Report 6026786-0 (Version None)
Quarter: 2009Q1

REPORT INFORMATION
  Report Type: 
  Country: None (occurrence: None)
  Receive Date: 20090105
  Receipt Date: 20081229
  Transmission Date: 20090719
  Serious: Yes (Hospitalization)
  Sender: FDA-Public Use
  Company Number: US-JNJFOC-20090100001

PATIENT
  Sex: Female
  Weight: 45.36 kg

DRUGS (6)
  1. DURAGESIC-100 [Suspect]
     Route: 062
  2. DURAGESIC-100 [Suspect]
     Indication: PAIN IN EXTREMITY
     Route: 062
  3. FENTANYL TRANSDERMAL SYSTEM [Suspect]
     Indication: PAIN IN EXTREMITY
     Route: 062
  4. XANAX [Concomitant]
     Indication: NERVOUS SYSTEM DISORDER
     Route: 048
  5. NEURONTIN [Concomitant]
     Indication: PHANTOM PAIN
     Route: 048
  6. TRENTAL [Concomitant]
     Indication: PHANTOM PAIN
     Route: 048

REACTIONS (7)
  - DECUBITUS ULCER [None]
  - DRUG DOSE OMISSION [None]
  - GANGRENE [None]
  - MOOD SWINGS [None]
  - NAUSEA [None]
  - WEIGHT DECREASED [None]
  - WITHDRAWAL SYNDROME [None]
